FAERS Safety Report 20879329 (Version 1)
Quarter: 2022Q2

REPORT INFORMATION
  Report Type: Spontaneous
  Country: US (occurrence: US)
  Receive Date: 20220526
  Receipt Date: 20220526
  Transmission Date: 20220721
  Serious: No
  Sender: FDA-Public Use
  Company Number: US-TEVA-2022-US-2037793

PATIENT
  Age: 70 Year
  Sex: Female

DRUGS (1)
  1. AUSTEDO [Suspect]
     Active Substance: DEUTETRABENAZINE
     Indication: Dyskinesia
     Dosage: 30 MILLIGRAM DAILY; 06 MG, 09 MG
     Route: 065
     Dates: start: 20211118, end: 20220510

REACTIONS (1)
  - Speech disorder developmental [Unknown]
